FAERS Safety Report 20864809 (Version 1)
Quarter: 2022Q2

REPORT INFORMATION
  Report Type: Spontaneous
  Country: DE (occurrence: DE)
  Receive Date: 20220524
  Receipt Date: 20220524
  Transmission Date: 20220721
  Serious: Yes (Death)
  Sender: FDA-Public Use
  Company Number: None

PATIENT
  Age: 91 Year
  Sex: Female
  Weight: 95 kg

DRUGS (8)
  1. MOLNUPIRAVIR [Suspect]
     Active Substance: MOLNUPIRAVIR
     Indication: COVID-19
     Dosage: 800 MILLIGRAM, EVERY 12 HOURS
     Route: 048
  2. PANTOPRAZOLE [Concomitant]
     Active Substance: PANTOPRAZOLE
     Dosage: UNK
  3. TORSEMIDE [Concomitant]
     Active Substance: TORSEMIDE
     Dosage: UNK
  4. ROSUVASTATIN [Concomitant]
     Active Substance: ROSUVASTATIN
     Dosage: UNK
  5. NEBIVOLOL [Concomitant]
     Active Substance: NEBIVOLOL
     Dosage: UNK
  6. TILIDINE [Concomitant]
     Active Substance: TILIDINE
     Dosage: UNK
  7. DIGITOXIN [Concomitant]
     Active Substance: DIGITOXIN
     Dosage: UNK
  8. MARCUMAR [Concomitant]
     Active Substance: PHENPROCOUMON
     Dosage: UNK

REACTIONS (2)
  - Cerebrovascular accident [Fatal]
  - Respiratory failure [Fatal]

NARRATIVE: CASE EVENT DATE: 20220206
